FAERS Safety Report 10919171 (Version 2)
Quarter: 2015Q1

REPORT INFORMATION
  Report Type: Spontaneous
  Country: US (occurrence: None)
  Receive Date: 20150312
  Receipt Date: 20150326
  Transmission Date: 20150721
  Serious: Yes (Other)
  Sender: FDA-Public Use
  Company Number: ADR-2015-00481

PATIENT
  Age: 35 Year
  Sex: Female

DRUGS (2)
  1. MORPHINE [Suspect]
     Active Substance: MORPHINE
     Indication: MUSCLE SPASMS
  2. BACLOFEN INTRATHECAL [Suspect]
     Active Substance: BACLOFEN
     Indication: PAIN

REACTIONS (11)
  - Implant site mass [None]
  - Condition aggravated [None]
  - Muscle spasms [None]
  - Granuloma [None]
  - Chest pain [None]
  - Post procedural complication [None]
  - Hypocalcaemia [None]
  - Therapeutic response decreased [None]
  - Chvostek^s sign [None]
  - Drug withdrawal syndrome [None]
  - Hypokalaemia [None]
